FAERS Safety Report 6037906-6 (Version None)
Quarter: 2009Q1

REPORT INFORMATION
  Report Type: 
  Country: None (occurrence: None)
  Receive Date: 20090115
  Receipt Date: 20090105
  Transmission Date: 20090719
  Serious: Yes (Life-Threatening, Hospitalization)
  Sender: FDA-Public Use
  Company Number: FR-BAXTER-801#1#2003_20845001

PATIENT
  Age: 12 Year
  Sex: Male

DRUGS (2)
  1. ENDOXAN BAXTER [Suspect]
     Indication: SYSTEMIC LUPUS ERYTHEMATOSUS
     Route: 042
     Dates: start: 20021102, end: 20021102
  2. CORTICOSTEROIDS [Concomitant]
     Indication: RENAL FAILURE

REACTIONS (8)
  - ANAPHYLACTIC REACTION [None]
  - HAEMOPTYSIS [None]
  - OXYGEN SATURATION DECREASED [None]
  - PARAESTHESIA [None]
  - PULMONARY OEDEMA [None]
  - RESPIRATORY DISTRESS [None]
  - RESPIRATORY FAILURE [None]
  - TACHYCARDIA [None]
